FAERS Safety Report 21145108 (Version 7)
Quarter: 2022Q3

REPORT INFORMATION
  Report Type: Other
  Country: US (occurrence: None)
  Receive Date: 20220729
  Receipt Date: 20220823
  Transmission Date: 20221027
  Serious: Yes (Hospitalization, Other)
  Sender: FDA-Public Use
  Company Number: US-ROCHE-2740960

PATIENT
  Age: 32 Year
  Sex: Male
  Weight: 74.910 kg

DRUGS (13)
  1. OCREVUS [Suspect]
     Active Substance: OCRELIZUMAB
     Indication: Secondary progressive multiple sclerosis
     Dosage: DATE OF TREATMENT: /JUL/2019, 05/JUL/2019, 24/JUN/2019, 08/JUL/2019, 28/DEC/2019, 26/JUN/2020
     Route: 042
     Dates: start: 20181217
  2. OCREVUS [Suspect]
     Active Substance: OCRELIZUMAB
     Route: 042
     Dates: start: 202006
  3. OCREVUS [Suspect]
     Active Substance: OCRELIZUMAB
     Route: 042
     Dates: start: 20200711
  4. OCREVUS [Suspect]
     Active Substance: OCRELIZUMAB
     Route: 042
     Dates: start: 2020
  5. DULOXETINE [Concomitant]
     Active Substance: DULOXETINE
  6. BACLOFEN [Concomitant]
     Active Substance: BACLOFEN
     Route: 048
     Dates: start: 2021
  7. BACLOFEN [Concomitant]
     Active Substance: BACLOFEN
     Route: 048
     Dates: start: 2021
  8. GABAPENTIN [Concomitant]
     Active Substance: GABAPENTIN
  9. TEMAZEPAM [Concomitant]
     Active Substance: TEMAZEPAM
  10. AMITRIPTYLINE [Concomitant]
     Active Substance: AMITRIPTYLINE
     Route: 048
     Dates: start: 20220511
  11. COPAXONE [Concomitant]
     Active Substance: GLATIRAMER ACETATE
  12. AMBIEN [Concomitant]
     Active Substance: ZOLPIDEM TARTRATE
     Route: 048
  13. FISH OIL [Concomitant]
     Active Substance: FISH OIL
     Route: 048

REACTIONS (17)
  - Sepsis [Recovering/Resolving]
  - Muscle spasms [Recovered/Resolved]
  - Clostridium difficile colitis [Unknown]
  - Multiple sclerosis [Not Recovered/Not Resolved]
  - Ear infection [Recovering/Resolving]
  - Off label use [Unknown]
  - Gait inability [Not Recovered/Not Resolved]
  - Feeling abnormal [Not Recovered/Not Resolved]
  - Weight decreased [Not Recovered/Not Resolved]
  - Throat irritation [Recovered/Resolved]
  - Hypotonia [Not Recovered/Not Resolved]
  - Dysstasia [Not Recovered/Not Resolved]
  - Pain [Not Recovered/Not Resolved]
  - Gait disturbance [Unknown]
  - Anger [Recovered/Resolved]
  - Urinary tract infection [Recovered/Resolved]
  - Motor dysfunction [Not Recovered/Not Resolved]

NARRATIVE: CASE EVENT DATE: 20200711
